FAERS Safety Report 14000111 (Version 1)
Quarter: 2017Q3

REPORT INFORMATION
  Report Type: Spontaneous
  Country: US (occurrence: US)
  Receive Date: 20170922
  Receipt Date: 20170922
  Transmission Date: 20171128
  Serious: Yes (Hospitalization, Other)
  Sender: FDA-Public Use
  Company Number: US-ASTRAZENECA-2017SE95295

PATIENT
  Age: 48 Year
  Sex: Female
  Weight: 82.1 kg

DRUGS (7)
  1. BRILINTA [Suspect]
     Active Substance: TICAGRELOR
     Indication: STENT PLACEMENT
     Route: 048
     Dates: start: 201706
  2. XANAX [Concomitant]
     Active Substance: ALPRAZOLAM
     Indication: ANXIETY
     Route: 048
  3. HYDROCODONE [Concomitant]
     Active Substance: HYDROCODONE
     Indication: PAIN IN EXTREMITY
     Dosage: 7.35MG EVERY 4 - 6 HOURS
     Route: 048
  4. BRILINTA [Suspect]
     Active Substance: TICAGRELOR
     Indication: CEREBROVASCULAR ACCIDENT
     Route: 048
     Dates: start: 201706
  5. BRILINTA [Suspect]
     Active Substance: TICAGRELOR
     Indication: MYOCARDIAL INFARCTION
     Route: 048
     Dates: start: 201706
  6. ASPIRIN. [Concomitant]
     Active Substance: ASPIRIN
     Route: 048
     Dates: start: 201706
  7. HYDROCODONE [Concomitant]
     Active Substance: HYDROCODONE
     Indication: BACK PAIN
     Dosage: 7.35MG EVERY 4 - 6 HOURS
     Route: 048

REACTIONS (17)
  - Dizziness [Unknown]
  - Vascular stent thrombosis [Unknown]
  - Chest pain [Unknown]
  - Off label use [Unknown]
  - Asthenia [Unknown]
  - Vaginal haemorrhage [Unknown]
  - Contusion [Unknown]
  - Gastrointestinal haemorrhage [Unknown]
  - Back pain [Unknown]
  - Vomiting [Unknown]
  - Chromaturia [Unknown]
  - Nausea [Unknown]
  - Dyspnoea [Unknown]
  - Blood pressure increased [Unknown]
  - Depression [Unknown]
  - Muscle spasms [Unknown]
  - Skin haemorrhage [Unknown]

NARRATIVE: CASE EVENT DATE: 201706
